FAERS Safety Report 14515968 (Version 2)
Quarter: 2020Q1

REPORT INFORMATION
  Report Type: Spontaneous
  Country: US (occurrence: US)
  Receive Date: 20180211
  Receipt Date: 20200129
  Transmission Date: 20200409
  Serious: No
  Sender: FDA-Public Use
  Company Number: US-PUMA BIOTECHNOLOGY, LTD.-2017US016776

PATIENT

DRUGS (1)
  1. NERLYNX [Suspect]
     Active Substance: NERATINIB
     Indication: PRODUCT USED FOR UNKNOWN INDICATION
     Dosage: UNKNOWN

REACTIONS (8)
  - Infection [Recovered/Resolved]
  - Diarrhoea [Unknown]
  - Swelling face [Recovered/Resolved]
  - Rash [Recovered/Resolved]
  - Fatigue [Recovering/Resolving]
  - Constipation [Unknown]
  - Rash pustular [Recovered/Resolved]
  - Nausea [Recovering/Resolving]
